FAERS Safety Report 15946403 (Version 2)
Quarter: 2019Q1

REPORT INFORMATION
  Report Type: Spontaneous
  Country: PL (occurrence: PL)
  Receive Date: 20190211
  Receipt Date: 20190225
  Transmission Date: 20190417
  Serious: No
  Sender: FDA-Public Use
  Company Number: PL-BAXTER-2019BAX002832

PATIENT
  Sex: Female

DRUGS (14)
  1. ENDOXAN [Suspect]
     Active Substance: CYCLOPHOSPHAMIDE
     Indication: INVASIVE LOBULAR BREAST CARCINOMA
     Dosage: 4 ? AC REGIMEN
     Route: 065
     Dates: start: 2015
  2. ZOLEDRONIC ACID CLARIS, 4 MG/5 ML, KONCENTRAT DO SPORZADZANIA ROZTWORU [Suspect]
     Active Substance: ZOLEDRONIC ACID
     Route: 041
  3. VINORELBINE [Concomitant]
     Active Substance: VINORELBINE\VINORELBINE TARTRATE
     Dosage: DOSE REDUCED
     Route: 048
  4. METHOTREXATE. [Concomitant]
     Active Substance: METHOTREXATE
     Indication: BREAST CANCER METASTATIC
     Route: 048
     Dates: start: 2017
  5. ZOLEDRONIC ACID CLARIS, 4 MG/5 ML, KONCENTRAT DO SPORZADZANIA ROZTWORU [Suspect]
     Active Substance: ZOLEDRONIC ACID
     Indication: PRODUCT USED FOR UNKNOWN INDICATION
     Route: 041
  6. VINORELBINE [Concomitant]
     Active Substance: VINORELBINE\VINORELBINE TARTRATE
     Dosage: DOSE REDUCED
     Route: 048
  7. ENDOXAN [Suspect]
     Active Substance: CYCLOPHOSPHAMIDE
     Indication: TRIPLE NEGATIVE BREAST CANCER
  8. DOCETAXEL. [Suspect]
     Active Substance: DOCETAXEL
     Indication: INVASIVE LOBULAR BREAST CARCINOMA
     Dosage: 4 ? DOCETAXEL AT 75 MG/M2
     Route: 065
     Dates: start: 2015
  9. CAPECITABINE. [Concomitant]
     Active Substance: CAPECITABINE
     Indication: BREAST CANCER METASTATIC
     Route: 065
     Dates: start: 201710
  10. DOXORUBICIN [Suspect]
     Active Substance: DOXORUBICIN
     Indication: INVASIVE LOBULAR BREAST CARCINOMA
     Dosage: 4 ? AC REGIMEN
     Route: 065
     Dates: start: 2015
  11. DOCETAXEL. [Suspect]
     Active Substance: DOCETAXEL
     Indication: TRIPLE NEGATIVE BREAST CANCER
  12. CYCLOPHOSPHAMIDE. [Concomitant]
     Active Substance: CYCLOPHOSPHAMIDE
     Indication: BREAST CANCER METASTATIC
     Dosage: THIRD-LINE CHEMOTHERAPY
     Route: 048
     Dates: start: 2017
  13. VINORELBINE [Concomitant]
     Active Substance: VINORELBINE\VINORELBINE TARTRATE
     Indication: BREAST CANCER METASTATIC
     Route: 048
  14. DOXORUBICIN [Suspect]
     Active Substance: DOXORUBICIN
     Indication: TRIPLE NEGATIVE BREAST CANCER

REACTIONS (3)
  - Influenza like illness [Unknown]
  - Asthenia [Unknown]
  - Nausea [Unknown]
